FAERS Safety Report 13656265 (Version 2)
Quarter: 2017Q4

REPORT INFORMATION
  Report Type: Report from Study
  Country: US (occurrence: US)
  Receive Date: 20170615
  Receipt Date: 20171129
  Transmission Date: 20180320
  Serious: Yes (Other)
  Sender: FDA-Public Use
  Company Number: US-PURDUE-USA-2017-0139413

PATIENT
  Age: 36 Year
  Sex: Female

DRUGS (3)
  1. OXYCODONE HYDROCHLORIDE. [Suspect]
     Active Substance: OXYCODONE HYDROCHLORIDE
     Indication: LIGAMENT DISORDER
     Dosage: UNK
     Route: 048
     Dates: start: 2016
  2. OXYCODONE HYDROCHLORIDE. [Suspect]
     Active Substance: OXYCODONE HYDROCHLORIDE
     Indication: SPINAL OSTEOARTHRITIS
     Dosage: 60 MG, BID
     Route: 048
  3. OXYCODONE HYDROCHLORIDE. [Suspect]
     Active Substance: OXYCODONE HYDROCHLORIDE
     Indication: SACROILIITIS
     Dosage: 40 MG, Q12H
     Route: 048
     Dates: start: 20170419, end: 20170519

REACTIONS (5)
  - Tooth infection [Unknown]
  - Bedridden [Not Recovered/Not Resolved]
  - Mobility decreased [Not Recovered/Not Resolved]
  - Toothache [Unknown]
  - Pain [Recovered/Resolved]

NARRATIVE: CASE EVENT DATE: 201704
